FAERS Safety Report 16000468 (Version 2)
Quarter: 2020Q4

REPORT INFORMATION
  Report Type: Spontaneous
  Country: US (occurrence: US)
  Receive Date: 20190225
  Receipt Date: 20201009
  Transmission Date: 20210113
  Serious: Yes (Disabling)
  Sender: FDA-Public Use
  Company Number: US-TEVA-2019-US-1016071

PATIENT
  Age: 49 Year
  Sex: Female
  Weight: 131.66 kg

DRUGS (6)
  1. NEOSAR [Concomitant]
     Active Substance: CYCLOPHOSPHAMIDE
     Indication: BREAST CANCER
     Dosage: EVERY 3 WEEKS FOR 4 CYCLES
     Route: 042
     Dates: start: 20140129, end: 20140402
  2. HYDROCHLOROTHIAZIDE. [Concomitant]
     Active Substance: HYDROCHLOROTHIAZIDE
     Route: 048
     Dates: start: 2004, end: 2016
  3. DOCITAXEL HOSPIRA [Suspect]
     Active Substance: DOCETAXEL
     Dosage: EVERY 3 WEEKS FOR 4 CYCLES
     Route: 042
     Dates: start: 20140129, end: 20140402
  4. AMLODPINE BESYLATE [Concomitant]
     Dosage: ONGOING
     Route: 048
     Dates: start: 2009
  5. METFORMIN [Concomitant]
     Active Substance: METFORMIN HYDROCHLORIDE
     Dosage: TWICE A DAY
     Route: 048
     Dates: start: 201310, end: 201602
  6. DOCETAXEL SAGENT [Suspect]
     Active Substance: DOCETAXEL
     Indication: BREAST CANCER
     Dosage: EVERY 3 WEEKS FOR 4 CYCLES
     Route: 042
     Dates: start: 20140129, end: 20140402

REACTIONS (3)
  - Alopecia [Not Recovered/Not Resolved]
  - Madarosis [Not Recovered/Not Resolved]
  - Hair disorder [Not Recovered/Not Resolved]

NARRATIVE: CASE EVENT DATE: 201401
